FAERS Safety Report 4326915-0 (Version None)
Quarter: 2004Q1

REPORT INFORMATION
  Report Type: 
  Country: None (occurrence: None)
  Receive Date: 20040330
  Receipt Date: 20040217
  Transmission Date: 20041129
  Serious: Yes (Hospitalization)
  Sender: FDA-Public Use
  Company Number: US-ROCHE-359246

PATIENT
  Age: 73 Year
  Sex: Male

DRUGS (5)
  1. ACCUTANE [Suspect]
     Indication: ROSACEA
     Route: 048
  2. HYDROXYUREA [Concomitant]
     Route: 048
  3. LASIX [Concomitant]
     Route: 048
  4. VERAPAMIL [Concomitant]
     Route: 048
  5. PREDNISOLONE [Concomitant]
     Route: 048

REACTIONS (19)
  - BLOOD PRESSURE SYSTOLIC INCREASED [None]
  - BONE PAIN [None]
  - C-REACTIVE PROTEIN INCREASED [None]
  - CHILLS [None]
  - DIVERTICULUM [None]
  - FEBRILE INFECTION [None]
  - GASTRITIS ATROPHIC [None]
  - HEADACHE [None]
  - HEPATITIS A ANTIBODY POSITIVE [None]
  - HYPERHIDROSIS [None]
  - LEUKOPENIA [None]
  - LIVER FUNCTION TEST ABNORMAL [None]
  - MYALGIA [None]
  - OEDEMA PERIPHERAL [None]
  - OESOPHAGITIS [None]
  - PYREXIA [None]
  - SPLENOMEGALY [None]
  - STAPHYLOCOCCAL INFECTION [None]
  - VIRAL INFECTION [None]
